FAERS Safety Report 10068587 (Version 1)
Quarter: 2014Q2

REPORT INFORMATION
  Report Type: Spontaneous
  Country: US (occurrence: US)
  Receive Date: 20140409
  Receipt Date: 20140409
  Transmission Date: 20141212
  Serious: No
  Sender: FDA-Public Use
  Company Number: US-ELI_LILLY_AND_COMPANY-US201404001880

PATIENT
  Age: 65 Year
  Sex: Male

DRUGS (5)
  1. CIALIS [Suspect]
     Indication: ERECTILE DYSFUNCTION
     Dosage: 20 MG, PRN
     Route: 065
     Dates: end: 20140330
  2. METFORMIN [Concomitant]
     Dosage: 1000 MG, QD
  3. LISINOPRIL [Concomitant]
     Dosage: 10 MG, UNK
  4. HYDROCHLOROTHIAZIDE [Concomitant]
     Dosage: 12.5 MG, UNKNOWN
  5. LIPITOR [Concomitant]
     Dosage: 20 MG, QD

REACTIONS (1)
  - Vision blurred [Recovered/Resolved]
